FAERS Safety Report 23626701 (Version 1)
Quarter: 2024Q1

REPORT INFORMATION
  Report Type: Spontaneous
  Country: US (occurrence: None)
  Receive Date: 20240312
  Receipt Date: 20240312
  Transmission Date: 20240410
  Serious: No
  Sender: FDA-Public Use
  Company Number: None

PATIENT
  Age: 66 Year
  Sex: Female
  Weight: 58.5 kg

DRUGS (8)
  1. PAXLOVID [Suspect]
     Active Substance: NIRMATRELVIR\RITONAVIR
     Indication: COVID-19
     Dosage: OTHER QUANTITY : 3 TABLET(S);?FREQUENCY : TWICE A DAY;?
     Route: 048
  2. LOSARTAN [Concomitant]
     Active Substance: LOSARTAN
  3. NIFEDIPINE [Concomitant]
     Active Substance: NIFEDIPINE
  4. VitsB [Concomitant]
  5. VITAMIN D3 [Concomitant]
     Active Substance: CHOLECALCIFEROL
  6. POTASSIUM [Concomitant]
     Active Substance: POTASSIUM
  7. MINERALS [Concomitant]
     Active Substance: MINERALS
  8. HERBALS\TURMERIC [Concomitant]
     Active Substance: HERBALS\TURMERIC

REACTIONS (15)
  - Nasopharyngitis [None]
  - Fatigue [None]
  - Abdominal pain [None]
  - Malaise [None]
  - Abdominal distension [None]
  - Dysgeusia [None]
  - Diarrhoea [None]
  - Dizziness [None]
  - Brain fog [None]
  - Nervous system disorder [None]
  - Nausea [None]
  - Fatigue [None]
  - Decreased appetite [None]
  - Abdominal tenderness [None]
  - Faeces discoloured [None]

NARRATIVE: CASE EVENT DATE: 20240302
